FAERS Safety Report 8493005-5 (Version None)
Quarter: 2012Q2

REPORT INFORMATION
  Report Type: 
  Country: None (occurrence: None)
  Receive Date: 20120629
  Receipt Date: 20120629
  Transmission Date: 20120825
  Serious: Yes (Hospitalization)
  Sender: FDA-Public Use
  Company Number: None

PATIENT
  Age: 66 Year
  Sex: Male
  Weight: 43.6 kg

DRUGS (1)
  1. TRIAMTERENE [Suspect]
     Dates: start: 20120413

REACTIONS (3)
  - ELECTROCARDIOGRAM ABNORMAL [None]
  - HYPOVOLAEMIA [None]
  - HYPERKALAEMIA [None]
